FAERS Safety Report 8983786 (Version 1)
Quarter: 2012Q4

REPORT INFORMATION
  Report Type: Report from Study
  Country: US (occurrence: US)
  Receive Date: 20121224
  Receipt Date: 20121224
  Transmission Date: 20130627
  Serious: Yes (Other)
  Sender: FDA-Public Use
  Company Number: US-ROCHE-1169871

PATIENT
  Sex: Female

DRUGS (2)
  1. OMALIZUMAB [Suspect]
     Indication: INFLAMMATION
     Route: 065
  2. OMALIZUMAB [Suspect]
     Indication: OFF LABEL USE

REACTIONS (1)
  - Cardiac failure congestive [Unknown]
